FAERS Safety Report 6278604-3 (Version None)
Quarter: 2009Q3

REPORT INFORMATION
  Report Type: 
  Country: None (occurrence: None)
  Receive Date: 20090722
  Receipt Date: 20090218
  Transmission Date: 20100115
  Serious: No
  Sender: FDA-Public Use
  Company Number: US-BAUSCH-2009BL000682

PATIENT
  Age: 54 Year
  Sex: Female

DRUGS (2)
  1. OPCON-A [Suspect]
     Indication: EYE ALLERGY
     Route: 047
     Dates: start: 20090211, end: 20090212
  2. PHENIRAMINE MALEATE [Concomitant]
     Indication: HYPERSENSITIVITY
     Route: 048

REACTIONS (5)
  - ERYTHEMA [None]
  - MYDRIASIS [None]
  - PRURITUS [None]
  - URTICARIA [None]
  - VISION BLURRED [None]
